FAERS Safety Report 23994799 (Version 1)
Quarter: 2024Q2

REPORT INFORMATION
  Report Type: Spontaneous
  Country: IT (occurrence: IT)
  Receive Date: 20240620
  Receipt Date: 20240620
  Transmission Date: 20240716
  Serious: Yes (Death, Other)
  Sender: FDA-Public Use
  Company Number: IT-Zuellig Korea-ATNAHS20240601760

PATIENT
  Age: 58 Year
  Sex: Male

DRUGS (2)
  1. VALIUM [Suspect]
     Active Substance: DIAZEPAM
     Indication: Suicide attempt
  2. POTASSIUM CHLORIDE [Suspect]
     Active Substance: POTASSIUM CHLORIDE
     Indication: Suicide attempt

REACTIONS (3)
  - Completed suicide [Fatal]
  - Asphyxia [Fatal]
  - Toxicity to various agents [Fatal]
